FAERS Safety Report 4990443-X (Version None)
Quarter: 2006Q2

REPORT INFORMATION
  Report Type: 
  Country: None (occurrence: None)
  Receive Date: 20060501
  Receipt Date: 20060501
  Transmission Date: 20061013
  Serious: No
  Sender: FDA-Public Use
  Company Number: None

PATIENT
  Sex: Male
  Weight: 72.5755 kg

DRUGS (1)
  1. ATENOLOL [Suspect]
     Dosage: 100MG  QD  PO
     Route: 048
     Dates: start: 20060405, end: 20060426

REACTIONS (3)
  - BLOOD PRESSURE INCREASED [None]
  - TACHYCARDIA [None]
  - THERAPEUTIC RESPONSE UNEXPECTED WITH DRUG SUBSTITUTION [None]
